FAERS Safety Report 9206342 (Version 2)
Quarter: 2013Q2

REPORT INFORMATION
  Report Type: Report from Study
  Country: US (occurrence: US)
  Receive Date: 20130403
  Receipt Date: 20130522
  Transmission Date: 20140414
  Serious: Yes (Hospitalization, Other)
  Sender: FDA-Public Use
  Company Number: PHHO2013US004601

PATIENT
  Age: 49 Year
  Sex: Female
  Weight: 87.15 kg

DRUGS (13)
  1. AFINITOR [Suspect]
     Indication: BREAST CANCER
     Dosage: 5 MG, QD
     Route: 048
     Dates: start: 20130225, end: 20130319
  2. AFINITOR [Suspect]
     Dosage: 5 MG, QD
     Route: 048
     Dates: start: 20130401
  3. PACLITAXEL [Suspect]
     Indication: BREAST CANCER
     Dosage: 80 MG/M2, UNK
     Dates: start: 20130304
  4. CISPLATIN [Suspect]
     Indication: BREAST CANCER
     Dosage: 25 MG/M2, UNK
     Dates: start: 20130225
  5. METOCLOPRAMIDE [Concomitant]
     Dosage: 10 MG, 1 PW
  6. SERTRALINE [Concomitant]
     Dosage: 50 MG, QD
     Route: 048
  7. ZOFRAN [Concomitant]
     Indication: NAUSEA
     Dosage: 8 MG, UNK
     Route: 048
  8. VITAMIN D [Concomitant]
     Dosage: 1 DF, QD
     Route: 048
  9. DIGOXIN [Concomitant]
     Dosage: 0.25 MG, QD
     Route: 048
  10. HYDROCODONE W/ACETAMINOPHEN [Concomitant]
     Indication: PAIN
     Dosage: 1 DF, 0-12 HRS PRN
     Route: 048
  11. LEVOTHYROXINE [Concomitant]
     Dosage: 0.1 MG, QD
     Route: 048
  12. MAGIC MOUTHWASH [Concomitant]
     Indication: MUCOSAL INFLAMMATION
     Dosage: 5 ML, TID
     Route: 048
  13. PROMETHAZINE [Concomitant]
     Dosage: 25 MG, UNK

REACTIONS (4)
  - Vomiting [Unknown]
  - Pyrexia [Unknown]
  - Nausea [Unknown]
  - Clostridium difficile colitis [Recovered/Resolved]
